FAERS Safety Report 22075927 (Version 1)
Quarter: 2023Q1

REPORT INFORMATION
  Report Type: Report from Study
  Country: CA (occurrence: CA)
  Receive Date: 20230308
  Receipt Date: 20230308
  Transmission Date: 20230417
  Serious: Yes (Hospitalization)
  Sender: FDA-Public Use
  Company Number: CA-JNJFOC-20230311037

PATIENT
  Sex: Female
  Weight: 93.5 kg

DRUGS (2)
  1. TREMFYA [Suspect]
     Active Substance: GUSELKUMAB
     Indication: Psoriasis
     Route: 058
     Dates: start: 20180124
  2. TREMFYA [Suspect]
     Active Substance: GUSELKUMAB

REACTIONS (1)
  - Cholecystitis [Recovered/Resolved]

NARRATIVE: CASE EVENT DATE: 20230124
